FAERS Safety Report 16353628 (Version 1)
Quarter: 2019Q2

REPORT INFORMATION
  Report Type: Spontaneous
  Country: CA (occurrence: CA)
  Receive Date: 20190524
  Receipt Date: 20190524
  Transmission Date: 20190711
  Serious: Yes (Life-Threatening, Hospitalization)
  Sender: FDA-Public Use
  Company Number: CA-PFIZER INC-2019217288

PATIENT
  Age: 46 Year
  Sex: Female
  Weight: 63.49 kg

DRUGS (9)
  1. LYRICA [Suspect]
     Active Substance: PREGABALIN
     Indication: SKIN LACERATION
     Dosage: 50 MG, 1X/DAY
     Route: 048
  2. EFFEXOR XR [Suspect]
     Active Substance: VENLAFAXINE HYDROCHLORIDE
     Dosage: UNK
     Route: 048
  3. EFFEXOR XR [Concomitant]
     Active Substance: VENLAFAXINE HYDROCHLORIDE
     Dosage: UNK
  4. EFFEXOR XR [Concomitant]
     Active Substance: VENLAFAXINE HYDROCHLORIDE
     Dosage: UNK
  5. LIPITOR [Concomitant]
     Active Substance: ATORVASTATIN CALCIUM
     Dosage: UNK
  6. SEROQUEL [Concomitant]
     Active Substance: QUETIAPINE FUMARATE
     Dosage: UNK
  7. VYVANSE [Concomitant]
     Active Substance: LISDEXAMFETAMINE DIMESYLATE
     Dosage: UNK
  8. LYRICA [Suspect]
     Active Substance: PREGABALIN
     Indication: PAIN OF SKIN
     Dosage: 75 MG, 1X/DAY
     Route: 048
  9. RIVOTRIL [Concomitant]
     Active Substance: CLONAZEPAM
     Dosage: UNK

REACTIONS (6)
  - Insomnia [Not Recovered/Not Resolved]
  - Irritability [Not Recovered/Not Resolved]
  - Nightmare [Not Recovered/Not Resolved]
  - Impatience [Not Recovered/Not Resolved]
  - Suicide attempt [Not Recovered/Not Resolved]
  - Condition aggravated [Not Recovered/Not Resolved]
